FAERS Safety Report 12478310 (Version 1)
Quarter: 2016Q2

REPORT INFORMATION
  Report Type: Spontaneous
  Country: US (occurrence: US)
  Receive Date: 20160617
  Receipt Date: 20160617
  Transmission Date: 20160815
  Serious: No
  Sender: FDA-Public Use
  Company Number: US-SHIRE-US201607441

PATIENT

DRUGS (1)
  1. VYVANSE [Suspect]
     Active Substance: LISDEXAMFETAMINE DIMESYLATE
     Indication: FATIGUE
     Dosage: 30 MG, UNKNOWN
     Route: 048

REACTIONS (4)
  - Glossodynia [Unknown]
  - Dry mouth [Unknown]
  - Stomatitis [Unknown]
  - Product use issue [Unknown]
